FAERS Safety Report 10367459 (Version 1)
Quarter: 2014Q1

REPORT INFORMATION
  Report Type: Spontaneous
  Country: US (occurrence: None)
  Receive Date: 20140306
  Receipt Date: 20140306
  Transmission Date: 20141002
  Serious: Yes (Hospitalization, Other)
  Sender: FDA-Public Use
  Company Number: 163-21880-13071661

PATIENT
  Age: 69 Year
  Sex: Male
  Weight: 82.56 kg

DRUGS (14)
  1. REVLIMID (LENALIDOMIDE) (25 MILLIGRAM, CAPSULES) [Suspect]
     Indication: PLASMA CELL MYELOMA
     Route: 048
     Dates: start: 201007
  2. ALLOPURINOL (ALLOPURINOL) [Suspect]
  3. OMEPRAZOLE (OMEPRAZOLE) [Concomitant]
  4. FLUCONAZOLE (FLUCONAZOLE) [Concomitant]
  5. LOVENOX (HEPARIN-FRACTION, SODIUM SALT) [Concomitant]
  6. DEXAMETHASONE (DEXAMETHASONE) [Concomitant]
  7. MSIR (MORPHINE SULFATE) [Concomitant]
  8. DILTIAZEM (DILTIAZEM) [Concomitant]
  9. DAPSONE (DAPSONE) [Concomitant]
  10. DIGOXIN (DIGOXIN) [Concomitant]
  11. CA + D (CALCIUM D3 ) [Concomitant]
  12. MG-OX (MAGNESIUM OXIDE) [Concomitant]
  13. LEVOTHYROXINE (LEVOTHYROXINE) [Concomitant]
  14. POTASSIUM (POTASSIUM) [Concomitant]

REACTIONS (1)
  - Viral infection [None]
